FAERS Safety Report 11202166 (Version 1)
Quarter: 2015Q2

REPORT INFORMATION
  Report Type: Spontaneous
  Country: US (occurrence: US)
  Receive Date: 20150619
  Receipt Date: 20150619
  Transmission Date: 20150821
  Serious: No
  Sender: FDA-Public Use
  Company Number: US-009507513-1505USA011615

PATIENT
  Age: 47 Year
  Sex: Female

DRUGS (5)
  1. PROVENTIL [Suspect]
     Active Substance: ALBUTEROL
     Indication: WHEEZING
     Dosage: 3 ML, EVERY SIX HOURS AS NEEDED
     Route: 055
     Dates: start: 20130521
  2. OXYCODONE [Suspect]
     Active Substance: OXYCODONE
  3. K-DUR [Suspect]
     Active Substance: POTASSIUM CHLORIDE
     Dosage: 20 MEQ, 1 TABLET DAILY
     Route: 048
     Dates: start: 20140401
  4. MOBIC [Suspect]
     Active Substance: MELOXICAM
     Dosage: UNK
  5. LORATADINE. [Suspect]
     Active Substance: LORATADINE
     Dosage: 10 MG, 1 TABLET DAILY
     Route: 048
     Dates: start: 20140428

REACTIONS (6)
  - Pain [Not Recovered/Not Resolved]
  - Bronchitis chronic [Not Recovered/Not Resolved]
  - Diarrhoea [Unknown]
  - Dyspnoea [Unknown]
  - Pruritus allergic [Unknown]
  - Pruritus [Unknown]

NARRATIVE: CASE EVENT DATE: 20130821
